FAERS Safety Report 8992743 (Version 1)
Quarter: 2013Q1

REPORT INFORMATION
  Report Type: Spontaneous
  Country: IN (occurrence: IN)
  Receive Date: 20130102
  Receipt Date: 20130102
  Transmission Date: 20140127
  Serious: Yes (Other)
  Sender: FDA-Public Use
  Company Number: IN-ROCHE-1175993

PATIENT
  Age: 88 Year
  Sex: Female

DRUGS (1)
  1. TENECTEPLASE [Suspect]
     Indication: BUNDLE BRANCH BLOCK LEFT
     Route: 042
     Dates: start: 20101002

REACTIONS (1)
  - Traumatic haemorrhage [Recovered/Resolved]
